FAERS Safety Report 11224852 (Version 1)
Quarter: 2015Q2

REPORT INFORMATION
  Report Type: Spontaneous
  Country: GB (occurrence: GB)
  Receive Date: 20150629
  Receipt Date: 20150629
  Transmission Date: 20150821
  Serious: Yes (Other)
  Sender: FDA-Public Use
  Company Number: GB-TEVA-572884ACC

PATIENT
  Age: 75 Year
  Sex: Female
  Weight: 84 kg

DRUGS (8)
  1. GLYCERYL TRINITRATE [Concomitant]
     Active Substance: NITROGLYCERIN
  2. INDAPAMIDE. [Concomitant]
     Active Substance: INDAPAMIDE
     Dosage: 1.5 MILLIGRAM DAILY; IN MORNING
  3. CARVEDILOL. [Concomitant]
     Active Substance: CARVEDILOL
     Dosage: 12.5 MILLIGRAM DAILY;
  4. QUININE [Suspect]
     Active Substance: QUININE
     Indication: MUSCLE SPASMS
     Dosage: 300 MILLIGRAM DAILY; ONE AT NIGHT
     Route: 048
     Dates: start: 20050425, end: 20150510
  5. ASPIRIN. [Concomitant]
     Active Substance: ASPIRIN
     Dosage: 75 MILLIGRAM DAILY;
  6. ISOSORBIDE [Concomitant]
     Active Substance: ISOSORBIDE
     Dosage: 40 MILLIGRAM DAILY;
  7. NICORANDIL [Concomitant]
     Active Substance: NICORANDIL
     Dosage: 40 MILLIGRAM DAILY;
  8. PERINDOPRIL ERBUMINE. [Concomitant]
     Active Substance: PERINDOPRIL ERBUMINE
     Dosage: 8 MILLIGRAM DAILY;

REACTIONS (6)
  - Vomiting [Unknown]
  - Macrocytosis [Unknown]
  - Neutropenia [Unknown]
  - Diarrhoea [Unknown]
  - Thrombocytopenia [Unknown]
  - Deafness [Unknown]

NARRATIVE: CASE EVENT DATE: 20050425
